FAERS Safety Report 16276906 (Version 3)
Quarter: 2019Q3

REPORT INFORMATION
  Report Type: Spontaneous
  Country: US (occurrence: US)
  Receive Date: 20190506
  Receipt Date: 20190820
  Transmission Date: 20191004
  Serious: No
  Sender: FDA-Public Use
  Company Number: US-PFIZER INC-2019189114

PATIENT
  Age: 56 Year
  Sex: Female

DRUGS (1)
  1. LYRICA [Suspect]
     Active Substance: PREGABALIN
     Dosage: UNK (TAKE A REALLY HIGH DOSE)

REACTIONS (3)
  - Withdrawal syndrome [Unknown]
  - Malaise [Unknown]
  - Gait disturbance [Unknown]
